FAERS Safety Report 14876255 (Version 2)
Quarter: 2018Q3

REPORT INFORMATION
  Report Type: Spontaneous
  Country: IT (occurrence: IT)
  Receive Date: 20180510
  Receipt Date: 20180704
  Transmission Date: 20181010
  Serious: Yes (Hospitalization)
  Sender: FDA-Public Use
  Company Number: IT-TEVA-2018-IT-891275

PATIENT
  Age: 19 Year
  Sex: Female

DRUGS (5)
  1. KETOTIFEN HYDROGEN FUMARATE [Suspect]
     Active Substance: KETOTIFEN FUMARATE
     Indication: INTENTIONAL SELF-INJURY
     Route: 048
  2. MONTELUKAST [Suspect]
     Active Substance: MONTELUKAST SODIUM
     Indication: INTENTIONAL SELF-INJURY
     Route: 048
  3. EXPOSE [Suspect]
     Active Substance: EPERISONE HYDROCHLORIDE
     Indication: INTENTIONAL SELF-INJURY
     Route: 065
  4. TACHIPIRINA 1000 MG COMPRESSE [Suspect]
     Active Substance: ACETAMINOPHEN
     Indication: INTENTIONAL SELF-INJURY
     Route: 048
  5. METFORMIN [Suspect]
     Active Substance: METFORMIN HYDROCHLORIDE
     Indication: INTENTIONAL SELF-INJURY
     Route: 048

REACTIONS (4)
  - Vomiting [Unknown]
  - Drug abuse [Unknown]
  - Overdose [Unknown]
  - Intentional self-injury [Unknown]

NARRATIVE: CASE EVENT DATE: 20170118
